FAERS Safety Report 10929781 (Version 1)
Quarter: 2015Q1

REPORT INFORMATION
  Report Type: Spontaneous
  Country: IN (occurrence: IN)
  Receive Date: 20150319
  Receipt Date: 20150319
  Transmission Date: 20150721
  Serious: Yes (Death, Hospitalization)
  Sender: FDA-Public Use
  Company Number: IN-SUN PHARMACEUTICAL INDUSTRIES LTD-2015SUN00731

PATIENT
  Sex: Male

DRUGS (3)
  1. CARVEDILOL 12.5 MG TABLET [Suspect]
     Active Substance: CARVEDILOL
     Indication: CONGESTIVE CARDIOMYOPATHY
  2. INTRAVENOUS IMMUNOGOLBULIN [Concomitant]
     Active Substance: HUMAN IMMUNOGLOBULIN G
     Indication: CARDIAC FAILURE
     Route: 042
  3. CARVEDILOL 12.5 MG TABLET [Suspect]
     Active Substance: CARVEDILOL
     Indication: CARDIAC FAILURE
     Route: 048

REACTIONS (2)
  - Respiratory tract infection [Unknown]
  - Cardiac failure [Fatal]
